FAERS Safety Report 15593206 (Version 1)
Quarter: 2018Q4

REPORT INFORMATION
  Report Type: Report from Study
  Country: IT (occurrence: IT)
  Receive Date: 20181107
  Receipt Date: 20181107
  Transmission Date: 20190205
  Serious: Yes (Hospitalization)
  Sender: FDA-Public Use
  Company Number: IT-TEVA-2018-IT-971771

PATIENT
  Age: 86 Year
  Sex: Female

DRUGS (7)
  1. EUTIROX 75 MICROGRAMMI COMPRESSE [Concomitant]
     Active Substance: LEVOTHYROXINE SODIUM
  2. CARVEDILOL. [Suspect]
     Active Substance: CARVEDILOL
     Dosage: 6.25 DOSAGE FORMS DAILY;
     Route: 048
  3. CORDARONE [Suspect]
     Active Substance: AMIODARONE HYDROCHLORIDE
     Dosage: 200 MILLIGRAM DAILY;
     Route: 048
  4. MEPRAL [Concomitant]
     Active Substance: OMEPRAZOLE SODIUM
     Route: 065
  5. LASIX [Concomitant]
     Active Substance: FUROSEMIDE
  6. ZYLORIC 300 MG COMPRESSE [Concomitant]
     Active Substance: ALLOPURINOL
  7. LUVION 50 MG COMPRESSE [Concomitant]

REACTIONS (3)
  - Hypotension [Recovered/Resolved]
  - Loss of consciousness [Recovered/Resolved]
  - Bradycardia [Recovered/Resolved]

NARRATIVE: CASE EVENT DATE: 20180422
